FAERS Safety Report 4569200-4 (Version None)
Quarter: 2005Q1

REPORT INFORMATION
  Report Type: 
  Country: None (occurrence: None)
  Receive Date: 20050201
  Receipt Date: 20050119
  Transmission Date: 20050727
  Serious: Yes (Other)
  Sender: FDA-Public Use
  Company Number: US012877

PATIENT
  Age: 28 Year
  Sex: Female
  Weight: 86.1834 kg

DRUGS (2)
  1. PROVIGIL [Suspect]
     Dosage: 2400 MG QD ORAL
     Route: 048
     Dates: start: 20030401
  2. CELEXA [Concomitant]

REACTIONS (10)
  - DEPRESSION [None]
  - DRUG ABUSER [None]
  - DRUG DEPENDENCE [None]
  - DRUG TOXICITY [None]
  - DRUG WITHDRAWAL SYNDROME [None]
  - EUPHORIC MOOD [None]
  - INSOMNIA [None]
  - MEDICATION ERROR [None]
  - REBOUND EFFECT [None]
  - SELF-MEDICATION [None]
